FAERS Safety Report 9303799 (Version 2)
Quarter: 2013Q3

REPORT INFORMATION
  Report Type: Report from Study
  Country: US (occurrence: None)
  Receive Date: 20130520
  Receipt Date: 20130701
  Transmission Date: 20140515
  Serious: Yes (Other)
  Sender: FDA-Public Use
  Company Number: ACO_36137_2013

PATIENT
  Age: 61 Year
  Sex: Male
  Weight: 93.4 kg

DRUGS (9)
  1. AMPYRA [Suspect]
     Indication: GAIT DISTURBANCE
     Route: 048
     Dates: start: 20100721, end: 201301
  2. TOPROL (METOPROLOL SUCCINATE) [Concomitant]
  3. HYDROCHLOROTHIAZIDE (HYDROCHLOROTHIAZIDE) [Concomitant]
  4. RAMIPRIL (RAMIPRIL) [Concomitant]
  5. COPAXONE (GLATIRAMER ACETATE) [Concomitant]
  6. B1 (THIAMINE HYDROCHLORIDE) [Concomitant]
  7. MAGNESIUM (MAGNESIUM) [Concomitant]
  8. MULTIVITAMIN (VITAMINS NOS) [Concomitant]
  9. ALLOPURINOL [Concomitant]

REACTIONS (2)
  - Renal disorder [None]
  - Blood urea abnormal [None]
